FAERS Safety Report 6004385-4 (Version None)
Quarter: 2008Q4

REPORT INFORMATION
  Report Type: 
  Country: None (occurrence: None)
  Receive Date: 20081216
  Receipt Date: 20081209
  Transmission Date: 20090506
  Serious: Yes (Other)
  Sender: FDA-Public Use
  Company Number: ES-ELI_LILLY_AND_COMPANY-ES200812002543

PATIENT
  Age: 38 Year
  Sex: Male
  Weight: 68 kg

DRUGS (5)
  1. GEMZAR [Suspect]
     Indication: HODGKIN'S DISEASE
     Dosage: 1 G, UNKNOWN
     Route: 042
     Dates: start: 20080729, end: 20080729
  2. GEMZAR [Suspect]
     Dosage: 1500 MG, UNKNOWN
     Route: 042
     Dates: start: 20080801, end: 20080801
  3. NAVELBINE [Concomitant]
     Indication: HODGKIN'S DISEASE
     Dosage: 50 MG, UNKNOWN
     Route: 042
     Dates: start: 20080729, end: 20080729
  4. TRONOXAL [Concomitant]
     Indication: HODGKIN'S DISEASE
     Dosage: 3700 MG, DAILY (1/D)
     Route: 042
     Dates: start: 20080729, end: 20080801
  5. UROMITEXAN [Concomitant]
     Indication: HODGKIN'S DISEASE
     Dosage: 4800 MG, DAILY (1/D)
     Route: 042
     Dates: start: 20080729, end: 20080801

REACTIONS (5)
  - ANXIETY [None]
  - CATATONIA [None]
  - CONFUSIONAL STATE [None]
  - MUTISM [None]
  - NIGHTMARE [None]
